FAERS Safety Report 11939146 (Version 4)
Quarter: 2016Q3

REPORT INFORMATION
  Report Type: Spontaneous
  Country: JP (occurrence: JP)
  Receive Date: 20160122
  Receipt Date: 20160913
  Transmission Date: 20161109
  Serious: Yes (Life-Threatening, Other)
  Sender: FDA-Public Use
  Company Number: JP-JNJFOC-20160116204

PATIENT
  Age: 46 Year
  Sex: Male
  Weight: 64 kg

DRUGS (11)
  1. QUETIAPINE. [Concomitant]
     Active Substance: QUETIAPINE
     Indication: SCHIZOPHRENIA
     Route: 048
  2. HALCION [Concomitant]
     Active Substance: TRIAZOLAM
     Indication: SCHIZOPHRENIA
     Route: 048
  3. LULLAN [Concomitant]
     Active Substance: PEROSPIRONE HYDROCHLORIDE
     Indication: SCHIZOPHRENIA
     Route: 048
     Dates: start: 20090410, end: 20150623
  4. HALOMONTH [Suspect]
     Active Substance: HALOPERIDOL DECANOATE
     Indication: SCHIZOPHRENIA
     Route: 030
     Dates: start: 2008, end: 20131112
  5. FLUNITRAZEPAM [Concomitant]
     Active Substance: FLUNITRAZEPAM
     Indication: SCHIZOPHRENIA
     Route: 048
  6. ROHYPNOL [Concomitant]
     Active Substance: FLUNITRAZEPAM
     Indication: PRODUCT USED FOR UNKNOWN INDICATION
     Route: 048
  7. HALOMONTH [Suspect]
     Active Substance: HALOPERIDOL DECANOATE
     Indication: SCHIZOPHRENIA
     Route: 030
     Dates: start: 20131113, end: 20150605
  8. RIVOTRIL [Concomitant]
     Active Substance: CLONAZEPAM
     Indication: PROPHYLAXIS
     Route: 048
     Dates: end: 20150811
  9. RIVOTRIL [Concomitant]
     Active Substance: CLONAZEPAM
     Indication: PROPHYLAXIS
     Route: 048
     Dates: start: 20150812, end: 20151007
  10. GOODMIN [Concomitant]
     Active Substance: BROTIZOLAM
     Indication: PRODUCT USED FOR UNKNOWN INDICATION
     Route: 048
  11. BIPERIDEN HYDROCHLORIDE [Concomitant]
     Active Substance: BIPERIDEN HYDROCHLORIDE
     Indication: PROPHYLAXIS
     Route: 048

REACTIONS (2)
  - Water intoxication [Recovered/Resolved]
  - Parkinsonism [Recovering/Resolving]

NARRATIVE: CASE EVENT DATE: 20131113
